FAERS Safety Report 5017745-5 (Version None)
Quarter: 2006Q2

REPORT INFORMATION
  Report Type: 
  Country: None (occurrence: None)
  Receive Date: 20060605
  Receipt Date: 20060524
  Transmission Date: 20061013
  Serious: Yes (Other)
  Sender: FDA-Public Use
  Company Number: PHNU2006DE02090

PATIENT
  Sex: Male

DRUGS (7)
  1. CLOZAPINE [Suspect]
     Dosage: UNK, UNK
     Route: 048
     Dates: start: 20020801
  2. TAVOR [Concomitant]
     Dates: start: 20020801
  3. LITHIUM CARBONATE [Concomitant]
     Dates: start: 20020801
  4. RAMIPRIL [Concomitant]
     Dates: start: 20020801
  5. ENALAPRIL [Concomitant]
     Dosage: 10 MG/DAY
     Dates: start: 20020801
  6. NEBILET [Concomitant]
     Dosage: 5 MG/DAY
     Dates: start: 20020801
  7. OMNIC [Concomitant]
     Indication: BENIGN PROSTATIC HYPERPLASIA
     Dosage: 0.4 MG/DAY

REACTIONS (11)
  - CONSTIPATION [None]
  - DISTURBANCE IN ATTENTION [None]
  - DYSPNOEA [None]
  - FATIGUE [None]
  - HEPATIC STEATOSIS [None]
  - HYPERHIDROSIS [None]
  - HYPERTENSION [None]
  - MICTURITION DISORDER [None]
  - PARKINSONISM [None]
  - RESPIRATORY DISORDER [None]
  - TARDIVE DYSKINESIA [None]
